FAERS Safety Report 20414724 (Version 2)
Quarter: 2022Q1

REPORT INFORMATION
  Report Type: Spontaneous
  Country: US (occurrence: US)
  Receive Date: 20220202
  Receipt Date: 20220309
  Transmission Date: 20220424
  Serious: Yes (Hospitalization, Other)
  Sender: FDA-Public Use
  Company Number: US-drreddys-SPO/USA/22/0146402

PATIENT
  Age: 17 Month
  Sex: Female

DRUGS (1)
  1. TACROLIMUS [Suspect]
     Active Substance: TACROLIMUS
     Indication: Immunosuppressant drug therapy

REACTIONS (5)
  - Tonsillar hypertrophy [Recovering/Resolving]
  - Oropharyngeal lymphoid hyperplasia [Recovering/Resolving]
  - Upper airway obstruction [Unknown]
  - Lymphoid tissue hyperplasia [Recovering/Resolving]
  - Post transplant lymphoproliferative disorder [Recovering/Resolving]
